FAERS Safety Report 9895967 (Version 2)
Quarter: 2014Q1

REPORT INFORMATION
  Report Type: Spontaneous
  Country: US (occurrence: US)
  Receive Date: 20140213
  Receipt Date: 20140213
  Transmission Date: 20141002
  Serious: No
  Sender: FDA-Public Use
  Company Number: US-BRISTOL-MYERS SQUIBB COMPANY-17407487

PATIENT
  Age: 54 Year
  Sex: Female
  Weight: 74.83 kg

DRUGS (4)
  1. ABATACEPT SUBQ INJECTION 125MG/ML [Suspect]
     Indication: RHEUMATOID ARTHRITIS
     Route: 058
  2. HYDROXYCHLOROQUINE [Concomitant]
     Dosage: TABS
  3. BIOTIN [Concomitant]
     Dosage: CAPS
  4. IBUPROFEN [Concomitant]
     Dosage: TABS

REACTIONS (3)
  - Influenza like illness [Recovered/Resolved]
  - Bursitis [Unknown]
  - Fall [Unknown]
